FAERS Safety Report 14559829 (Version 1)
Quarter: 2018Q1

REPORT INFORMATION
  Report Type: Spontaneous
  Country: US (occurrence: US)
  Receive Date: 20180220
  Receipt Date: 20180220
  Transmission Date: 20180509
  Serious: Yes (Other)
  Sender: FDA-Public Use
  Company Number: None

PATIENT
  Age: 7 Year
  Sex: Female
  Weight: 23.4 kg

DRUGS (1)
  1. TAMIFLU [Suspect]
     Active Substance: OSELTAMIVIR PHOSPHATE
     Indication: INFLUENZA
     Dosage: ?          QUANTITY:1 TEASPOON(S);?
     Route: 048
     Dates: start: 20180216

REACTIONS (13)
  - Screaming [None]
  - Conversion disorder [None]
  - Fear [None]
  - Sleep terror [None]
  - Anxiety [None]
  - Anger [None]
  - Hallucination, visual [None]
  - Hallucination, auditory [None]
  - Abnormal behaviour [None]
  - Panic attack [None]
  - Feeling cold [None]
  - Tremor [None]
  - Middle insomnia [None]

NARRATIVE: CASE EVENT DATE: 20180216
